FAERS Safety Report 7465764-1 (Version None)
Quarter: 2011Q2

REPORT INFORMATION
  Report Type: 
  Country: None (occurrence: None)
  Receive Date: 20110509
  Receipt Date: 20110429
  Transmission Date: 20111010
  Serious: Yes (Hospitalization)
  Sender: FDA-Public Use
  Company Number: KR-ELI_LILLY_AND_COMPANY-KR201105000355

PATIENT
  Sex: Male
  Weight: 62.1 kg

DRUGS (4)
  1. FOLIC ACID [Concomitant]
     Dosage: 1 MG, UNK
     Route: 048
     Dates: start: 20090311, end: 20090429
  2. DEXAMETHASONE [Concomitant]
     Dosage: 8 MG, UNK
     Route: 048
     Dates: start: 20090311, end: 20090430
  3. PEMETREXED [Suspect]
     Indication: NON-SMALL CELL LUNG CANCER
     Dosage: 850 MG/M2, UNK
     Route: 042
     Dates: start: 20090318
  4. VITAMIN B-12 [Concomitant]
     Dosage: 1 MG, UNK
     Route: 030
     Dates: start: 20090311, end: 20090311

REACTIONS (2)
  - GASTRITIS [None]
  - BACK PAIN [None]
